FAERS Safety Report 25545087 (Version 1)
Quarter: 2025Q3

REPORT INFORMATION
  Report Type: Spontaneous
  Country: EU (occurrence: EU)
  Receive Date: 20250711
  Receipt Date: 20250711
  Transmission Date: 20251020
  Serious: Yes (Other)
  Sender: TEVA
  Company Number: EU-TEVA-VS-3344479

PATIENT
  Age: 53 Year
  Sex: Female

DRUGS (10)
  1. FENTANYL TRANSDERMAL SYSTEM [Suspect]
     Active Substance: FENTANYL
     Indication: Pain
     Dosage: 12 AND 25 MIKROGRAMM/H MATRIXPFLASTER, DOSAGE: 12  G/H
     Route: 062
     Dates: start: 2019
  2. FENTANYL TRANSDERMAL SYSTEM [Suspect]
     Active Substance: FENTANYL
     Indication: Pain
     Route: 062
     Dates: start: 2019
  3. FENTANYL TRANSDERMAL SYSTEM [Suspect]
     Active Substance: FENTANYL
     Indication: Pain
     Route: 062
     Dates: start: 2019
  4. SULTANOL [Concomitant]
     Active Substance: ALBUTEROL SULFATE
     Indication: Product used for unknown indication
  5. FEXOFENADINE HYDROCHLORIDE [Concomitant]
     Active Substance: FEXOFENADINE HYDROCHLORIDE
     Indication: Product used for unknown indication
  6. PROGESTERONE [Concomitant]
     Active Substance: PROGESTERONE
     Indication: Product used for unknown indication
  7. FRANKINCENSE [Concomitant]
     Active Substance: FRANKINCENSE
     Indication: Product used for unknown indication
  8. VITAMIN B12 [Concomitant]
     Active Substance: CYANOCOBALAMIN
     Indication: Product used for unknown indication
  9. IBUPROFEN [Concomitant]
     Active Substance: IBUPROFEN
     Indication: Product used for unknown indication
  10. TIZANIDINE [Suspect]
     Active Substance: TIZANIDINE
     Indication: Product used for unknown indication
     Route: 065

REACTIONS (19)
  - Loss of consciousness [Unknown]
  - Tremor [Unknown]
  - Muscle spasms [Unknown]
  - Gastrointestinal motility disorder [Unknown]
  - Muscle twitching [Unknown]
  - Fall [Unknown]
  - Therapeutic response shortened [Unknown]
  - Dizziness [Unknown]
  - Hypotension [Unknown]
  - Intentional product misuse [Unknown]
  - Noninfective gingivitis [Unknown]
  - Blood pressure fluctuation [Unknown]
  - Anal incontinence [Unknown]
  - Vibration syndrome [Unknown]
  - Insomnia [Unknown]
  - Pain in extremity [Unknown]
  - Underdose [Unknown]
  - Inappropriate schedule of product administration [Unknown]
  - Product use in unapproved indication [Unknown]

NARRATIVE: CASE EVENT DATE: 20190101
